FAERS Safety Report 8766473 (Version 1)
Quarter: 2012Q4

REPORT INFORMATION
  Report Type: 
  Country: US (occurrence: US)
  Receive Date: 20120904
  Receipt Date: 20120904
  Transmission Date: 20130627
  Serious: Yes (Other)
  Sender: FDA-Public Use
  Company Number: US-ROCHE-1113150

PATIENT

DRUGS (4)
  1. AVASTIN [Suspect]
     Indication: COLORECTAL CANCER METASTATIC
     Route: 042
  2. XELODA [Suspect]
     Indication: COLORECTAL CANCER METASTATIC
     Dosage: D1-14, Q3W
     Route: 048
  3. OXALIPLATIN [Suspect]
     Indication: COLORECTAL CANCER METASTATIC
     Dosage: Day 1
     Route: 042
  4. VANDETANIB [Suspect]
     Indication: COLORECTAL CANCER METASTATIC
     Dosage: once daily, continuous
     Route: 048

REACTIONS (7)
  - Decreased appetite [Unknown]
  - Diarrhoea [Unknown]
  - Fatigue [Unknown]
  - Blood calcium decreased [Unknown]
  - Blood potassium decreased [Unknown]
  - Thrombocytopenia [Unknown]
  - Pneumonitis [Unknown]
